FAERS Safety Report 8923146 (Version 1)
Quarter: 2012Q4

REPORT INFORMATION
  Report Type: Spontaneous
  Country: US (occurrence: None)
  Receive Date: 20121115
  Receipt Date: 20121115
  Transmission Date: 20130627
  Serious: No
  Sender: FDA-Public Use
  Company Number: None

PATIENT
  Age: 32 Year
  Sex: Male
  Weight: 90 kg

DRUGS (4)
  1. CIMZIA [Suspect]
     Indication: CROHN^S DISEASE
  2. AZOTHIAPRINE [Concomitant]
  3. HYDROCODONE/APAP [Concomitant]
  4. TRIMADOL [Concomitant]

REACTIONS (1)
  - Urinary tract infection [None]
